FAERS Safety Report 15076839 (Version 3)
Quarter: 2018Q3

REPORT INFORMATION
  Report Type: Spontaneous
  Country: IT (occurrence: IT)
  Receive Date: 20180627
  Receipt Date: 20180830
  Transmission Date: 20181010
  Serious: Yes (Hospitalization)
  Sender: FDA-Public Use
  Company Number: IT-PFIZER INC-2018255863

PATIENT
  Age: 57 Year
  Sex: Female
  Weight: 73 kg

DRUGS (3)
  1. LENVIMA [Interacting]
     Active Substance: LENVATINIB
     Indication: THYROID CANCER
     Dosage: 24 MG, ONCE A DAY
     Route: 048
     Dates: start: 20180421, end: 20180505
  2. ZOLOFT [Suspect]
     Active Substance: SERTRALINE HYDROCHLORIDE
     Indication: DEPRESSION
     Dosage: 100 MG, ONCE A DAY
     Route: 048
  3. EUTIROX [Interacting]
     Active Substance: LEVOTHYROXINE SODIUM
     Indication: POST PROCEDURAL HYPOTHYROIDISM
     Dosage: 112.5 UG, ONCE A DAY
     Route: 048
     Dates: start: 20111101, end: 20180521

REACTIONS (7)
  - Depressed level of consciousness [Recovering/Resolving]
  - Generalised tonic-clonic seizure [Recovering/Resolving]
  - Drug interaction [Recovering/Resolving]
  - Eye movement disorder [Recovering/Resolving]
  - Speech disorder [Recovering/Resolving]
  - Dysstasia [Recovering/Resolving]
  - Motor dysfunction [Recovering/Resolving]

NARRATIVE: CASE EVENT DATE: 20180505
